FAERS Safety Report 5291811-1 (Version None)
Quarter: 2007Q2

REPORT INFORMATION
  Report Type: 
  Country: None (occurrence: None)
  Receive Date: 20070406
  Receipt Date: 20070406
  Transmission Date: 20071010
  Serious: No
  Sender: FDA-Public Use
  Company Number: None

PATIENT
  Age: 54 Year
  Sex: Male
  Weight: 109.3169 kg

DRUGS (18)
  1. QUINAPRIL [Suspect]
     Dosage: 10 MG BID
     Dates: start: 20060101, end: 20070101
  2. LISINOPRIL [Suspect]
     Dosage: 20 MG BID
     Dates: start: 20070203, end: 20070206
  3. TORADOL [Suspect]
     Dosage: 60 MG IM X1
  4. NITROGLYCERIN [Concomitant]
  5. SIMVASTATIN [Concomitant]
  6. OMEPRAZOLE [Concomitant]
  7. NIASPAN ER [Concomitant]
  8. METOPROLOL TART [Concomitant]
  9. NPH INSULIN [Concomitant]
  10. ASPART INSULIN [Concomitant]
  11. M.V.I. [Concomitant]
  12. DIGOXIN [Concomitant]
  13. ACETAMINOPHEN [Concomitant]
  14. PREDNISOLONE [Concomitant]
  15. MICONAZOLE [Concomitant]
  16. SEPTRA DS [Concomitant]
  17. AUGMENTIN '125' [Concomitant]
  18. ACETAM 500/HYDRO [Concomitant]

REACTIONS (2)
  - DIABETIC FOOT INFECTION [None]
  - GANGRENE [None]
